FAERS Safety Report 5131682-7 (Version None)
Quarter: 2006Q4

REPORT INFORMATION
  Report Type: 
  Country: None (occurrence: None)
  Receive Date: 20061016
  Receipt Date: 20061003
  Transmission Date: 20070319
  Serious: Yes (Other)
  Sender: FDA-Public Use
  Company Number: 2006094839

PATIENT
  Age: 37 Year
  Sex: Female

DRUGS (1)
  1. NASANYL (NAFARELIN ACETATE) [Suspect]
     Dosage: 400 MCG (DAILY), INHALATION
     Route: 055
     Dates: start: 20060620, end: 20060710

REACTIONS (1)
  - PLATELET COUNT DECREASED [None]
